FAERS Safety Report 5367211-2 (Version None)
Quarter: 2007Q2

REPORT INFORMATION
  Report Type: 
  Country: None (occurrence: None)
  Receive Date: 20070622
  Receipt Date: 20070611
  Transmission Date: 20071010
  Serious: Yes (Death, Hospitalization)
  Sender: FDA-Public Use
  Company Number: US-ROCHE-501671

PATIENT
  Age: 91 Year
  Sex: Female

DRUGS (1)
  1. BONIVA [Suspect]
     Indication: OSTEOPOROSIS
     Route: 048
     Dates: start: 20050501, end: 20060501

REACTIONS (4)
  - DEHYDRATION [None]
  - EATING DISORDER [None]
  - HIP FRACTURE [None]
  - MULTI-ORGAN FAILURE [None]
